FAERS Safety Report 8781857 (Version 1)
Quarter: 2012Q4

REPORT INFORMATION
  Report Type: 
  Country: FR (occurrence: FR)
  Receive Date: 20120914
  Receipt Date: 20120914
  Transmission Date: 20130627
  Serious: Yes (Hospitalization)
  Sender: FDA-Public Use
  Company Number: FR-SANOFI-AVENTIS-2012SA065158

PATIENT
  Sex: Female

DRUGS (2)
  1. TORENTAL LP [Suspect]
     Indication: DRUG USE FOR UNKNOWN INDICATION
     Route: 048
  2. CARBAMAZEPINE [Suspect]
     Indication: MEDICATION ERROR
     Dosage: therapy dates: 16feb2012- feb-2012
     Route: 048
     Dates: start: 20120216

REACTIONS (4)
  - Transient ischaemic attack [Recovered/Resolved]
  - Medication error [Recovered/Resolved]
  - Drug dispensing error [None]
  - Wrong drug administered [None]
